FAERS Safety Report 14553804 (Version 1)
Quarter: 2018Q1

REPORT INFORMATION
  Report Type: Spontaneous
  Country: CN (occurrence: CN)
  Receive Date: 20180220
  Receipt Date: 20180220
  Transmission Date: 20180509
  Serious: Yes (Hospitalization)
  Sender: FDA-Public Use
  Company Number: CN-ELI_LILLY_AND_COMPANY-CN201802004327

PATIENT

DRUGS (1)
  1. HUMULIN 70/30 [Suspect]
     Active Substance: INSULIN HUMAN
     Indication: DIABETES MELLITUS
     Dosage: UNK, DAILY
     Route: 065
     Dates: start: 2017

REACTIONS (4)
  - Blood glucose increased [Unknown]
  - Impaired healing [Unknown]
  - Hypertension [Unknown]
  - Drug ineffective [Unknown]
